FAERS Safety Report 5833495-7 (Version None)
Quarter: 2008Q3

REPORT INFORMATION
  Report Type: 
  Country: None (occurrence: None)
  Receive Date: 20080805
  Receipt Date: 20080730
  Transmission Date: 20090109
  Serious: Yes (Hospitalization)
  Sender: FDA-Public Use
  Company Number: CA-ASTRAZENECA-2008UW15034

PATIENT
  Age: 77 Year
  Sex: Male

DRUGS (10)
  1. CASODEX [Suspect]
     Route: 048
     Dates: end: 20080721
  2. ASPIRIN [Concomitant]
  3. CALCIUM [Concomitant]
  4. ATENOLOL [Concomitant]
  5. VASOTEC [Concomitant]
  6. GLUCOPHAGE [Concomitant]
  7. LOPRESSOR [Concomitant]
  8. PANTOPRAZOLE SODIUM [Concomitant]
  9. VITAMIN D [Concomitant]
  10. COUMADIN [Concomitant]

REACTIONS (1)
  - LEUKOCYTOCLASTIC VASCULITIS [None]
